FAERS Safety Report 24454030 (Version 2)
Quarter: 2024Q4

REPORT INFORMATION
  Report Type: Spontaneous
  Country: CN (occurrence: CN)
  Receive Date: 20241017
  Receipt Date: 20241018
  Transmission Date: 20250115
  Serious: No
  Sender: ROCHE
  Company Number: CN-ROCHE-3464561

PATIENT
  Age: 37 Year
  Sex: Male
  Weight: 72.0 kg

DRUGS (7)
  1. MABTHERA [Suspect]
     Active Substance: RITUXIMAB
     Indication: Nephrotic syndrome
     Dosage: MICROPUMP PUMPING, INJECTION
     Route: 041
     Dates: start: 20231121, end: 20231121
  2. MABTHERA [Suspect]
     Active Substance: RITUXIMAB
     Route: 042
  3. DEXAMETHASONE SODIUM PHOSPHATE [Concomitant]
     Active Substance: DEXAMETHASONE SODIUM PHOSPHATE
     Indication: Allergy prophylaxis
     Route: 030
     Dates: start: 20231121, end: 20231121
  4. SODIUM CHLORIDE [Concomitant]
     Active Substance: SODIUM CHLORIDE
     Route: 042
     Dates: start: 20231121, end: 20231121
  5. ESOMEPRAZOLE [Concomitant]
     Active Substance: ESOMEPRAZOLE
     Route: 048
     Dates: start: 20231121, end: 20231121
  6. VALSARTAN [Concomitant]
     Active Substance: VALSARTAN
     Indication: Nephrotic syndrome
     Route: 048
     Dates: start: 2023
  7. FUROSEMIDE [Concomitant]
     Active Substance: FUROSEMIDE
     Indication: Nephrotic syndrome
     Route: 048
     Dates: start: 2023

REACTIONS (2)
  - Pruritus [Recovering/Resolving]
  - Off label use [Unknown]

NARRATIVE: CASE EVENT DATE: 20231121
